FAERS Safety Report 19190782 (Version 1)
Quarter: 2021Q2

REPORT INFORMATION
  Report Type: Spontaneous
  Country: US (occurrence: US)
  Receive Date: 20210428
  Receipt Date: 20210428
  Transmission Date: 20210717
  Serious: No
  Sender: FDA-Public Use
  Company Number: US-ARBOR PHARMACEUTICALS, LLC-US-2020ARB000410

PATIENT
  Sex: Male

DRUGS (1)
  1. ERY?TAB [Suspect]
     Active Substance: ERYTHROMYCIN
     Indication: PRODUCT USED FOR UNKNOWN INDICATION
     Dosage: 333 MG, UNK

REACTIONS (2)
  - Product availability issue [Unknown]
  - Product dose omission issue [Unknown]
